FAERS Safety Report 10077632 (Version 2)
Quarter: 2014Q2

REPORT INFORMATION
  Report Type: Spontaneous
  Country: US (occurrence: US)
  Receive Date: 20140414
  Receipt Date: 20140414
  Transmission Date: 20141212
  Serious: No
  Sender: FDA-Public Use
  Company Number: US-BANPHARM-20142032

PATIENT
  Age: 70 Year
  Sex: Female
  Weight: 66.68 kg

DRUGS (4)
  1. ALEVE LIQUID GELS 220 MG [Suspect]
     Indication: PAIN
     Dosage: 2 DF, PRN,
     Route: 048
     Dates: start: 20140109, end: 20140113
  2. STOMACH PILL [Concomitant]
  3. DEPRESSION PILL [Concomitant]
  4. SLEEP AID PILL [Concomitant]

REACTIONS (2)
  - Headache [Not Recovered/Not Resolved]
  - Headache [Recovered/Resolved]
